FAERS Safety Report 7552944-X (Version None)
Quarter: 2011Q2

REPORT INFORMATION
  Report Type: 
  Country: None (occurrence: None)
  Receive Date: 20110616
  Receipt Date: 20110615
  Transmission Date: 20111010
  Serious: Yes (Death)
  Sender: FDA-Public Use
  Company Number: JP-PFIZER INC-2011131299

PATIENT
  Age: 91 Year
  Sex: Female

DRUGS (2)
  1. ATORVASTATIN CALCIUM [Suspect]
     Indication: HYPERCHOLESTEROLAEMIA
     Dosage: 10 MG, EVERYDAY
     Route: 048
     Dates: start: 20101007, end: 20110107
  2. DOBUPUM [Concomitant]
     Indication: CARDIAC FAILURE
     Dosage: UNK
     Dates: start: 20110104, end: 20110109

REACTIONS (1)
  - DEATH [None]
